FAERS Safety Report 7796117-4 (Version None)
Quarter: 2011Q4

REPORT INFORMATION
  Report Type: 
  Country: None (occurrence: None)
  Receive Date: 20111004
  Receipt Date: 20110929
  Transmission Date: 20120403
  Serious: Yes (Other)
  Sender: FDA-Public Use
  Company Number: US-AMGEN-USASP2011047840

PATIENT
  Age: 74 Year
  Sex: Female
  Weight: 53.515 kg

DRUGS (13)
  1. NPLATE [Suspect]
     Indication: IDIOPATHIC THROMBOCYTOPENIC PURPURA
     Dosage: 500 MUG, QWK
     Route: 058
     Dates: start: 20100923
  2. CORTICOSTEROIDS [Concomitant]
     Indication: IDIOPATHIC THROMBOCYTOPENIC PURPURA
  3. GABAPENTIN [Concomitant]
     Dosage: 100 MG, TID
     Route: 048
  4. PACERONE [Concomitant]
     Dosage: 200 MG, QD
     Route: 048
  5. PREDNISONE [Concomitant]
     Indication: IDIOPATHIC THROMBOCYTOPENIC PURPURA
     Dosage: 5 MG, QD
     Route: 048
  6. FOLIC ACID [Concomitant]
  7. PROMACTA [Concomitant]
     Indication: IDIOPATHIC THROMBOCYTOPENIC PURPURA
     Dosage: 50 MG, UNK
     Dates: start: 20110524
  8. RESTORIL [Concomitant]
     Dosage: 30 MG, QHS
     Route: 048
  9. CITALOPRAM HYDROBROMIDE [Concomitant]
     Dosage: 10 MG, QD
     Route: 048
  10. DANAZOL [Concomitant]
     Dosage: 200 MG, TID
     Route: 048
  11. EMLA [Concomitant]
     Dosage: UNK
     Route: 061
  12. AMBIEN [Concomitant]
     Dosage: 5 UNK, QHS
     Route: 048
  13. ATENOLOL [Concomitant]
     Dosage: 25 MG, QD
     Route: 048

REACTIONS (3)
  - METASTATIC NEOPLASM [None]
  - BREAST CANCER [None]
  - BONE MARROW RETICULIN FIBROSIS [None]
